FAERS Safety Report 20586322 (Version 1)
Quarter: 2022Q1

REPORT INFORMATION
  Report Type: Spontaneous
  Country: GB (occurrence: GB)
  Receive Date: 20220313
  Receipt Date: 20220313
  Transmission Date: 20220424
  Serious: Yes (Other)
  Sender: FDA-Public Use
  Company Number: GB-BIOGEN-2022BI01103454

PATIENT
  Sex: Male

DRUGS (1)
  1. SPINRAZA [Suspect]
     Active Substance: NUSINERSEN
     Indication: Spinal muscular atrophy
     Route: 037

REACTIONS (6)
  - Akinesia [Unknown]
  - Aphasia [Unknown]
  - General physical health deterioration [Unknown]
  - Rhinovirus infection [Unknown]
  - Parainfluenzae virus infection [Unknown]
  - Pneumonia [Unknown]
